FAERS Safety Report 15955971 (Version 1)
Quarter: 2019Q1

REPORT INFORMATION
  Report Type: Spontaneous
  Country: US (occurrence: US)
  Receive Date: 20190212
  Receipt Date: 20190212
  Transmission Date: 20190417
  Serious: Yes (Other)
  Sender: FDA-Public Use
  Company Number: None

PATIENT
  Age: 28 Year
  Sex: Female
  Weight: 97.65 kg

DRUGS (1)
  1. BUPRENORPHINE/NALOXONE [Suspect]
     Active Substance: BUPRENORPHINE\NALOXONE
     Indication: DRUG ABUSE
     Route: 060
     Dates: start: 20190107, end: 20190131

REACTIONS (5)
  - Maternal exposure during breast feeding [None]
  - Maternal exposure during pregnancy [None]
  - Maternal exposure before pregnancy [None]
  - Nausea [None]
  - Headache [None]

NARRATIVE: CASE EVENT DATE: 20190107
